FAERS Safety Report 11303078 (Version 2)
Quarter: 2015Q3

REPORT INFORMATION
  Report Type: Spontaneous
  Country: US (occurrence: US)
  Receive Date: 20150723
  Receipt Date: 20150827
  Transmission Date: 20151125
  Serious: Yes (Hospitalization)
  Sender: FDA-Public Use
  Company Number: US-CELGENEUS-USA-2015072527

PATIENT
  Age: 39 Year
  Sex: Male

DRUGS (3)
  1. DECADRON [Concomitant]
     Active Substance: DEXAMETHASONE
     Indication: PLASMA CELL MYELOMA
     Route: 048
     Dates: start: 201304
  2. REVLIMID [Suspect]
     Active Substance: LENALIDOMIDE
     Indication: PLASMA CELL MYELOMA
     Dosage: 25 MILLIGRAM
     Route: 048
     Dates: start: 20130404
  3. HYDROCODONE [Concomitant]
     Active Substance: HYDROCODONE
     Indication: PLASMA CELL MYELOMA
     Dosage: 10/325
     Route: 065
     Dates: start: 201104

REACTIONS (2)
  - Fall [Recovered/Resolved]
  - Blood potassium decreased [Recovered/Resolved]

NARRATIVE: CASE EVENT DATE: 2015
